FAERS Safety Report 20614430 (Version 4)
Quarter: 2022Q2

REPORT INFORMATION
  Report Type: Spontaneous
  Country: US (occurrence: US)
  Receive Date: 20220321
  Receipt Date: 20220601
  Transmission Date: 20220721
  Serious: Yes (Life-Threatening, Hospitalization, Other)
  Sender: FDA-Public Use
  Company Number: US-AUROBINDO-AUR-APL-2022-009052

PATIENT
  Age: 17 Year
  Sex: Female

DRUGS (4)
  1. DIVALPROEX SODIUM [Suspect]
     Active Substance: DIVALPROEX SODIUM
     Indication: Product used for unknown indication
     Dosage: 88 DOSAGE FORM IN TOTAL
     Route: 048
  2. INSULIN GLARGINE [Concomitant]
     Active Substance: INSULIN GLARGINE
     Indication: Diabetes mellitus
     Dosage: UNK
     Route: 065
  3. INSULIN LISPRO [Concomitant]
     Active Substance: INSULIN LISPRO
     Indication: Diabetes mellitus
     Dosage: UNK
     Route: 065
  4. LACOSAMIDE [Concomitant]
     Active Substance: LACOSAMIDE
     Indication: Epilepsy
     Dosage: UNK
     Route: 065

REACTIONS (24)
  - Coma [Recovered/Resolved]
  - Unresponsive to stimuli [Recovered/Resolved]
  - Intentional overdose [Recovered/Resolved]
  - Pancytopenia [Recovered/Resolved]
  - Seizure [Recovered/Resolved]
  - Pancreatitis necrotising [Recovered/Resolved]
  - Encephalopathy [Recovered/Resolved]
  - Shock [Recovered/Resolved]
  - Hyperammonaemia [Recovered/Resolved]
  - Metabolic acidosis [Recovered/Resolved]
  - Hyperlactacidaemia [Recovered/Resolved]
  - Hypernatraemia [Recovered/Resolved]
  - Type 3 diabetes mellitus [Recovered/Resolved]
  - Toxicity to various agents [Recovered/Resolved]
  - Acute kidney injury [Recovered/Resolved]
  - Extrasystoles [Recovered/Resolved]
  - Respiratory acidosis [Recovered/Resolved]
  - Thrombocytopenia [Recovered/Resolved]
  - Continuous haemodiafiltration [Recovered/Resolved]
  - Hypotension [Recovered/Resolved]
  - Haemodynamic instability [Recovered/Resolved]
  - Metabolic disorder [Recovered/Resolved]
  - Depressed level of consciousness [Recovered/Resolved]
  - Anaemia [Recovered/Resolved]
